FAERS Safety Report 8955255 (Version 1)
Quarter: 2012Q4

REPORT INFORMATION
  Report Type: Spontaneous
  Country: US (occurrence: None)
  Receive Date: 20121204
  Receipt Date: 20121204
  Transmission Date: 20130627
  Serious: No
  Sender: FDA-Public Use
  Company Number: None

PATIENT
  Age: 40 Year
  Sex: Male
  Weight: 87.54 kg

DRUGS (1)
  1. DIVALPROEX SODIUM [Suspect]
     Dosage: 500mg QHS PO
     Route: 048

REACTIONS (1)
  - Convulsion [None]
